FAERS Safety Report 10222019 (Version 1)
Quarter: 2014Q2

REPORT INFORMATION
  Report Type: Spontaneous
  Country: BR (occurrence: BR)
  Receive Date: 20140606
  Receipt Date: 20140606
  Transmission Date: 20141212
  Serious: Yes (Other)
  Sender: FDA-Public Use
  Company Number: BR-BIOMARINAP-BR-2014-102650

PATIENT
  Age: 6 Year
  Sex: Female
  Weight: 15 kg

DRUGS (4)
  1. NAGLAZYME [Suspect]
     Indication: MUCOPOLYSACCHARIDOSIS VI
     Dosage: 15 MG, QW
     Route: 041
     Dates: start: 20130116
  2. BUDECORT [Concomitant]
     Indication: PRODUCT USED FOR UNKNOWN INDICATION
  3. AMOXICILLIN [Concomitant]
     Indication: UPPER RESPIRATORY TRACT INFECTION
  4. LORATADINE [Concomitant]
     Indication: PREMEDICATION
     Route: 048

REACTIONS (3)
  - Apnoea [Recovered/Resolved]
  - Oxygen saturation decreased [Recovered/Resolved]
  - Pallor [Recovered/Resolved]
